FAERS Safety Report 5792013-2 (Version None)
Quarter: 2008Q2

REPORT INFORMATION
  Report Type: 
  Country: None (occurrence: None)
  Receive Date: 20080625
  Receipt Date: 20080407
  Transmission Date: 20081010
  Serious: No
  Sender: FDA-Public Use
  Company Number: US-WYE-H03513908

PATIENT
  Age: 66 Year
  Sex: Male
  Weight: 58.3 kg

DRUGS (11)
  1. TORISEL [Suspect]
     Indication: RENAL CELL CARCINOMA
     Dosage: 25 MG 1X PER 1 WK, INTRAVENOUS
     Route: 042
     Dates: start: 20080101
  2. HYDROMORPHONE HCL [Concomitant]
  3. VICODIN [Concomitant]
  4. METHYLPHENIDATE HCL [Concomitant]
  5. MEGESTROL ACETATE [Concomitant]
  6. LOPRESSOR [Concomitant]
  7. LYRICA [Concomitant]
  8. ZANTAC [Concomitant]
  9. CYMBALTA [Concomitant]
  10. CORGE (CARVEDILOL) [Concomitant]
  11. LISINOPRIL [Concomitant]

REACTIONS (2)
  - BLOOD BILIRUBIN INCREASED [None]
  - PLATELET COUNT DECREASED [None]
